FAERS Safety Report 7603131-8 (Version None)
Quarter: 2011Q3

REPORT INFORMATION
  Report Type: 
  Country: None (occurrence: None)
  Receive Date: 20110712
  Receipt Date: 20110630
  Transmission Date: 20111222
  Serious: Yes (Hospitalization, Other)
  Sender: FDA-Public Use
  Company Number: CA-ELI_LILLY_AND_COMPANY-CA201106009028

PATIENT
  Sex: Female
  Weight: 98.8 kg

DRUGS (26)
  1. ZYPREXA [Suspect]
     Dosage: 10 MG, BID
  2. ZYPREXA [Suspect]
     Dosage: 15 MG, QD
  3. ZYPREXA ZYDIS [Suspect]
     Dosage: 2.5 MG, QD
  4. DOXEPIN [Concomitant]
  5. CITALOPRAM HYDROBROMIDE [Concomitant]
  6. LITHIUM [Concomitant]
  7. GABAPENTIN [Concomitant]
  8. TRAZODONE HCL [Concomitant]
  9. BUSPAR [Concomitant]
  10. CES [Concomitant]
  11. INDOCIN [Concomitant]
  12. LEVOCARB [Concomitant]
  13. CLONAZEPAM [Concomitant]
  14. QUETIAPINE [Concomitant]
  15. HALDOL [Concomitant]
  16. DESIPRAMIDE HCL [Concomitant]
  17. MIRTAZAPINE [Concomitant]
  18. WELLBUTRIN [Concomitant]
  19. VENLAFAXINE [Concomitant]
  20. NORTRIPTYLINE HCL [Concomitant]
  21. VALIUM [Concomitant]
  22. PAROXETINE HCL [Concomitant]
  23. THIORIDAZINE HCL [Concomitant]
  24. ZYPREXA [Suspect]
     Dosage: 7.5 MG, BID
  25. IMOVANE [Concomitant]
  26. LOXAPINE HCL [Concomitant]

REACTIONS (29)
  - ARRHYTHMIA [None]
  - DIPLOPIA [None]
  - HYPOTENSION [None]
  - CORONARY ARTERY DISEASE [None]
  - SEROTONIN SYNDROME [None]
  - CONVULSION [None]
  - VAGINAL HAEMORRHAGE [None]
  - UROSEPSIS [None]
  - RHABDOMYOLYSIS [None]
  - NEUROPATHY PERIPHERAL [None]
  - CYSTITIS [None]
  - HYPERTENSION [None]
  - ANGINA PECTORIS [None]
  - RENAL FAILURE [None]
  - POST PROCEDURAL HAEMORRHAGE [None]
  - BURNING FEET SYNDROME [None]
  - URINARY TRACT INFECTION [None]
  - HYPERLIPIDAEMIA [None]
  - LOCKED-IN SYNDROME [None]
  - SEPSIS [None]
  - CEREBROVASCULAR ACCIDENT [None]
  - POSTOPERATIVE WOUND INFECTION [None]
  - PAIN IN EXTREMITY [None]
  - CORONARY ARTERY OCCLUSION [None]
  - WEIGHT INCREASED [None]
  - NEUROLEPTIC MALIGNANT SYNDROME [None]
  - DIABETES MELLITUS [None]
  - HEPATIC ENZYME INCREASED [None]
  - EPISTAXIS [None]
